FAERS Safety Report 9065129 (Version 3)
Quarter: 2013Q2

REPORT INFORMATION
  Report Type: Spontaneous
  Country: US (occurrence: US)
  Receive Date: 20130214
  Receipt Date: 20130603
  Transmission Date: 20140414
  Serious: No
  Sender: FDA-Public Use
  Company Number: US-PFIZER INC-2013058150

PATIENT
  Age: 69 Year
  Sex: Female
  Weight: 81.63 kg

DRUGS (8)
  1. XALKORI [Suspect]
     Indication: NEOPLASM MALIGNANT
     Dosage: 250 MG, 2X/DAY
     Route: 048
     Dates: start: 20111104
  2. XALKORI [Suspect]
     Dosage: 250 MG, 1X/DAY
  3. METFORMIN [Concomitant]
     Indication: GLUCOSE TOLERANCE IMPAIRED
     Dosage: 500 MG, 2X/DAY
  4. METOPROLOL [Concomitant]
     Indication: HYPERTENSION
     Dosage: 100 MG, 2X/DAY
  5. CALCIUM [Concomitant]
     Dosage: 500 MG, 2X/DAY
  6. VITAMIN D [Concomitant]
     Dosage: UNK,1X/DAY
  7. SIMVASTATIN [Concomitant]
     Indication: BLOOD CHOLESTEROL INCREASED
     Dosage: 80 MG, 1X/DAY
  8. LOSARTAN [Concomitant]
     Indication: HYPERTENSION
     Dosage: UNK

REACTIONS (10)
  - Local swelling [Recovered/Resolved]
  - Vomiting [Recovered/Resolved]
  - Dizziness [Not Recovered/Not Resolved]
  - Alopecia [Unknown]
  - Appetite disorder [Unknown]
  - Weight increased [Unknown]
  - Swelling [Unknown]
  - Inner ear disorder [Unknown]
  - Disease progression [Unknown]
  - Neoplasm malignant [Unknown]
